FAERS Safety Report 7581498-7 (Version None)
Quarter: 2011Q2

REPORT INFORMATION
  Report Type: 
  Country: None (occurrence: None)
  Receive Date: 20110629
  Receipt Date: 20110617
  Transmission Date: 20111010
  Serious: Yes (Hospitalization)
  Sender: FDA-Public Use
  Company Number: PHFR2011GB03731

PATIENT
  Sex: Female

DRUGS (4)
  1. CLOZAPINE [Suspect]
     Indication: SCHIZOPHRENIA
     Dosage: 150 MG, 450 MG DAILY
     Route: 048
     Dates: start: 19990720
  2. AMISULPRIDE [Suspect]
     Route: 065
  3. AMLODIPINE [Suspect]
     Dosage: OVERDOSE
     Route: 065
  4. ATENOLOL [Suspect]
     Dosage: OVERDOSE
     Route: 065

REACTIONS (4)
  - BLOOD PROLACTIN INCREASED [None]
  - NAUSEA [None]
  - OVERDOSE [None]
  - VOMITING [None]
